FAERS Safety Report 6625420-6 (Version None)
Quarter: 2010Q1

REPORT INFORMATION
  Report Type: 
  Country: None (occurrence: None)
  Receive Date: 20100310
  Receipt Date: 20090825
  Transmission Date: 20100710
  Serious: No
  Sender: FDA-Public Use
  Company Number: US-BIOGENIDEC-2009BI026989

PATIENT
  Sex: Female

DRUGS (1)
  1. AVONEX [Suspect]
     Indication: MULTIPLE SCLEROSIS
     Route: 030
     Dates: start: 20010101

REACTIONS (6)
  - DIZZINESS [None]
  - FIBROMYALGIA [None]
  - GAIT DISTURBANCE [None]
  - HEARING IMPAIRED [None]
  - HYPERTENSION [None]
  - OPTIC NERVE INJURY [None]
